FAERS Safety Report 22170416 (Version 1)
Quarter: 2023Q2

REPORT INFORMATION
  Report Type: Spontaneous
  Country: FR (occurrence: FR)
  Receive Date: 20230404
  Receipt Date: 20230404
  Transmission Date: 20230722
  Serious: Yes (Hospitalization)
  Sender: FDA-Public Use
  Company Number: None

PATIENT
  Age: 73 Year
  Sex: Male

DRUGS (2)
  1. CISPLATIN [Suspect]
     Active Substance: CISPLATIN
     Indication: Gastrointestinal neuroendocrine carcinoma
     Dates: start: 20230105, end: 20230118
  2. PEMBROLIZUMAB [Suspect]
     Active Substance: PEMBROLIZUMAB
     Indication: Squamous cell carcinoma
     Dates: start: 20221003, end: 20230123

REACTIONS (2)
  - Acute kidney injury [Recovering/Resolving]
  - Nephropathy [Recovered/Resolved]

NARRATIVE: CASE EVENT DATE: 20230202
